FAERS Safety Report 5213325-7 (Version None)
Quarter: 2007Q1

REPORT INFORMATION
  Report Type: 
  Country: None (occurrence: None)
  Receive Date: 20070119
  Receipt Date: 20060407
  Transmission Date: 20070707
  Serious: No
  Sender: FDA-Public Use
  Company Number: US-GLAXOSMITHKLINE-A0598213A

PATIENT
  Age: 76 Year
  Sex: Female

DRUGS (7)
  1. ARIXTRA [Suspect]
     Dosage: 2.5MG PER DAY
     Route: 058
     Dates: start: 20050221, end: 20060306
  2. DIOVAN HCT [Concomitant]
  3. ACIPHEX [Concomitant]
  4. MOBIC [Concomitant]
  5. ASPIRIN [Concomitant]
  6. ZYRTEC [Concomitant]
  7. DARVOCET [Concomitant]

REACTIONS (4)
  - CONTUSION [None]
  - LOCAL REACTION [None]
  - MUSCLE SPASMS [None]
  - PAIN [None]
